FAERS Safety Report 24379951 (Version 1)
Quarter: 2024Q3

REPORT INFORMATION
  Report Type: Spontaneous
  Country: US (occurrence: US)
  Receive Date: 20240930
  Receipt Date: 20240930
  Transmission Date: 20241016
  Serious: No
  Sender: CALLIDITAS THERAPEUTICS
  Company Number: US-Calliditas-2024CAL02003

PATIENT
  Age: 58 Year
  Sex: Female

DRUGS (1)
  1. TARPEYO [Suspect]
     Active Substance: BUDESONIDE
     Indication: Haematuria
     Dosage: 8MG BY MOUTH ONCE DAILY FOR 14 DAYS
     Route: 048
     Dates: start: 20230628

REACTIONS (2)
  - Condition aggravated [Unknown]
  - Alopecia [Unknown]
